FAERS Safety Report 5386557-5 (Version None)
Quarter: 2007Q3

REPORT INFORMATION
  Report Type: 
  Country: None (occurrence: None)
  Receive Date: 20070713
  Receipt Date: 20070706
  Transmission Date: 20080115
  Serious: Yes (Hospitalization)
  Sender: FDA-Public Use
  Company Number: A0662181A

PATIENT
  Age: 25 Year
  Sex: Female

DRUGS (2)
  1. VALTREX [Suspect]
     Indication: GENITAL HERPES
     Route: 048
  2. IBUPROFEN [Concomitant]

REACTIONS (4)
  - ABDOMINAL PAIN [None]
  - COLITIS [None]
  - DIARRHOEA HAEMORRHAGIC [None]
  - PHARMACEUTICAL PRODUCT COMPLAINT [None]
